FAERS Safety Report 7428619-4 (Version None)
Quarter: 2011Q2

REPORT INFORMATION
  Report Type: 
  Country: None (occurrence: None)
  Receive Date: 20110421
  Receipt Date: 20110413
  Transmission Date: 20111010
  Serious: Yes (Hospitalization)
  Sender: FDA-Public Use
  Company Number: US-EISAI INC-E7272-00090-CLI-US

PATIENT
  Sex: Female
  Weight: 91 kg

DRUGS (57)
  1. HYDROCHLOROTHIAZIDE [Concomitant]
     Indication: BLOOD PRESSURE
     Route: 048
  2. ZOFRAN [Concomitant]
  3. SCOPOLAMINE [Concomitant]
     Indication: VOMITING
     Route: 062
     Dates: start: 20110304, end: 20110313
  4. HYDROMORPHONE [Concomitant]
     Route: 042
     Dates: start: 20110311, end: 20110315
  5. HYDROMORPHONE [Concomitant]
     Route: 042
     Dates: start: 20110303, end: 20110303
  6. ZOFRAN [Concomitant]
     Route: 042
     Dates: start: 20110309, end: 20110314
  7. PROMETHAZINE [Concomitant]
     Indication: NAUSEA
     Route: 042
     Dates: start: 20110310, end: 20110310
  8. DOCUSATE [Concomitant]
     Indication: CONSTIPATION
     Route: 048
  9. MELPHALAN [Concomitant]
     Indication: ORGAN TRANSPLANT
     Route: 042
     Dates: start: 20110301, end: 20110301
  10. ACYCLOVIR [Concomitant]
     Indication: INFECTION PROPHYLAXIS
     Route: 048
     Dates: start: 20110304, end: 20110316
  11. OXYCODONE HCL [Concomitant]
     Route: 048
     Dates: start: 20110321, end: 20110323
  12. EMEND [Concomitant]
     Indication: NAUSEA
     Route: 048
     Dates: start: 20110304, end: 20110304
  13. EMEND [Concomitant]
     Route: 048
     Dates: start: 20110303, end: 20110303
  14. MEDROL [Concomitant]
     Route: 048
     Dates: start: 20110401, end: 20110403
  15. ONTAK [Suspect]
     Route: 041
     Dates: start: 20110303, end: 20110303
  16. COMPAZINE [Concomitant]
     Indication: NAUSEA
     Route: 048
     Dates: start: 20110304, end: 20110308
  17. ATIVAN [Concomitant]
     Indication: NAUSEA
     Route: 048
  18. ZOFRAN [Concomitant]
     Route: 042
     Dates: start: 20110301, end: 20110301
  19. CEFEPIME [Concomitant]
     Indication: INFECTION PROPHYLAXIS
     Route: 042
     Dates: start: 20110322, end: 20110327
  20. PROMETHAZINE [Concomitant]
     Indication: VOMITING
  21. MEDROL [Concomitant]
     Route: 048
     Dates: start: 20110404
  22. SENNA [Concomitant]
     Indication: CONSTIPATION
     Route: 048
  23. CHLORHEXIDINE MOUTHWASH [Concomitant]
     Indication: ORAL DISORDER
     Route: 048
  24. MARINOL [Concomitant]
     Indication: NAUSEA
  25. OXYCODONE HCL [Concomitant]
     Indication: PAIN
     Route: 048
     Dates: start: 20110323, end: 20110323
  26. OXYCODONE HCL [Concomitant]
     Route: 048
     Dates: start: 20110304, end: 20110312
  27. SCOPOLAMINE [Concomitant]
     Indication: NAUSEA
     Route: 062
     Dates: start: 20110325, end: 20110325
  28. PROTONIX [Concomitant]
     Route: 048
     Dates: start: 20110303, end: 20110303
  29. DIPHENHYDRAMINE HCL [Concomitant]
     Route: 042
     Dates: start: 20110306, end: 20110316
  30. ACYCLOVIR [Concomitant]
     Indication: INFECTION
     Route: 048
     Dates: start: 20110330
  31. DOXYCYCLINE [Concomitant]
     Indication: HIDRADENITIS
     Route: 048
     Dates: end: 20110310
  32. ZOLOFT [Concomitant]
     Indication: ANXIETY
     Route: 048
  33. ZOFRAN [Concomitant]
     Indication: VOMITING
  34. CEFEPIME [Concomitant]
     Route: 042
     Dates: start: 20110311, end: 20110316
  35. ATIVAN [Concomitant]
     Indication: VOMITING
  36. DEXAMETHASONE [Concomitant]
     Indication: VOMITING
  37. FLUCONAZOLE [Concomitant]
     Indication: INFECTION PROPHYLAXIS
     Route: 042
     Dates: start: 20110303, end: 20110316
  38. ACYCLOVIR [Concomitant]
     Route: 048
     Dates: start: 20110304, end: 20110304
  39. NEUPOGEN [Concomitant]
     Route: 058
     Dates: start: 20110309, end: 20110315
  40. DEXAMETHASONE [Concomitant]
     Indication: NAUSEA
     Route: 042
     Dates: start: 20110301, end: 20110301
  41. NEUPOGEN [Concomitant]
     Indication: NEUTROPENIA
     Route: 058
     Dates: start: 20110322, end: 20110322
  42. NEUPOGEN [Concomitant]
     Route: 058
     Dates: start: 20110309, end: 20110315
  43. PROTONIX [Concomitant]
     Indication: NAUSEA
     Route: 042
     Dates: start: 20110320, end: 20110328
  44. PROTONIX [Concomitant]
     Indication: VOMITING
  45. HYDROMORPHONE [Concomitant]
     Indication: PAIN
     Route: 042
     Dates: start: 20110323, end: 20110327
  46. FUROSEMIDE [Concomitant]
     Indication: FLUID RETENTION
     Route: 042
     Dates: start: 20110305, end: 20110305
  47. ZOFRAN [Concomitant]
     Route: 042
     Dates: start: 20110303, end: 20110305
  48. ZOLOFT [Concomitant]
     Indication: DEPRESSION
  49. DIAZEPAM [Concomitant]
     Indication: ANXIETY
     Route: 048
  50. ZOFRAN [Concomitant]
     Indication: NAUSEA
     Dosage: UNKNOWN
     Route: 048
     Dates: start: 20110301, end: 20110301
  51. COMPAZINE [Concomitant]
     Indication: VOMITING
     Route: 048
     Dates: start: 20110301, end: 20110301
  52. MARINOL [Concomitant]
     Route: 048
     Dates: start: 20110325
  53. FUROSEMIDE [Concomitant]
     Route: 042
     Dates: start: 20110314, end: 20110314
  54. METOCLOPRAMIDE [Concomitant]
     Route: 042
     Dates: start: 20110303, end: 20110303
  55. ZOFRAN [Concomitant]
     Route: 042
     Dates: start: 20110303, end: 20110303
  56. PROTONIX [Concomitant]
     Route: 048
     Dates: start: 20110317, end: 20110317
  57. PROTONIX [Concomitant]
     Route: 042
     Dates: start: 20110303, end: 20110316

REACTIONS (1)
  - ACUTE GRAFT VERSUS HOST DISEASE IN INTESTINE [None]
